FAERS Safety Report 7151811-3 (Version None)
Quarter: 2010Q4

REPORT INFORMATION
  Report Type: 
  Country: None (occurrence: None)
  Receive Date: 20101123
  Receipt Date: 20100902
  Transmission Date: 20110411
  Serious: No
  Sender: FDA-Public Use
  Company Number: 018252

PATIENT
  Sex: Male

DRUGS (1)
  1. CIMZIA [Suspect]
     Indication: CROHN'S DISEASE
     Dosage: 800 MG 1X/4 WEEKS SUBCUTANEOUS
     Route: 058
     Dates: start: 20090416

REACTIONS (1)
  - FATIGUE [None]
